FAERS Safety Report 8272258-2 (Version None)
Quarter: 2012Q2

REPORT INFORMATION
  Report Type: 
  Country: None (occurrence: None)
  Receive Date: 20120410
  Receipt Date: 20120402
  Transmission Date: 20120825
  Serious: Yes (Hospitalization, Other)
  Sender: FDA-Public Use
  Company Number: PHBS2010DE00491

PATIENT
  Sex: Male
  Weight: 95 kg

DRUGS (7)
  1. TORSEMIDE [Suspect]
     Dosage: 20 MEQ/KG, QD
     Route: 048
  2. OMEPRAZOLE [Concomitant]
     Dosage: 20 MG, QD
     Route: 048
     Dates: start: 20111031
  3. BISOPROLOL FUMARATE [Concomitant]
     Dosage: 2.5 MG, QD
     Route: 048
     Dates: start: 20111031
  4. ORAL ANTIDIABETICS [Concomitant]
     Route: 048
  5. RASILEZ [Suspect]
     Dosage: 300 MG, QD
     Route: 048
     Dates: start: 20081127
  6. METFORMIN HCL [Suspect]
     Dosage: 2000 MG, QD
     Route: 048
     Dates: start: 20080101
  7. SPIRONOLACTONE [Concomitant]
     Dosage: 25 MG, QD
     Route: 048
     Dates: start: 20111031

REACTIONS (8)
  - DYSPNOEA [None]
  - EJECTION FRACTION DECREASED [None]
  - OBSTRUCTIVE AIRWAYS DISORDER [None]
  - LEFT VENTRICULAR DYSFUNCTION [None]
  - ANGINA PECTORIS [None]
  - CONGESTIVE CARDIOMYOPATHY [None]
  - BLOOD PRESSURE INCREASED [None]
  - BUNDLE BRANCH BLOCK LEFT [None]
